FAERS Safety Report 25307569 (Version 1)
Quarter: 2025Q2

REPORT INFORMATION
  Report Type: Report from Study
  Country: US (occurrence: US)
  Receive Date: 20250513
  Receipt Date: 20250513
  Transmission Date: 20250716
  Serious: Yes (Hospitalization, Other)
  Sender: UCB
  Company Number: US-UCBSA-2024045917

PATIENT
  Age: 6 Year
  Sex: Male
  Weight: 26.8 kg

DRUGS (3)
  1. FINTEPLA [Suspect]
     Active Substance: FENFLURAMINE
     Indication: Lennox-Gastaut syndrome
     Dosage: 2 MILLIGRAM, 2X/DAY (BID)
     Dates: start: 20230131
  2. FINTEPLA [Suspect]
     Active Substance: FENFLURAMINE
     Dosage: 2 MILLILITER, 2X/DAY (BID)
  3. FINTEPLA [Suspect]
     Active Substance: FENFLURAMINE

REACTIONS (6)
  - Vagal nerve stimulator implantation [Recovered/Resolved]
  - Left-to-right cardiac shunt [Unknown]
  - Mitral valve prolapse [Unknown]
  - Systolic anterior motion of mitral valve [Unknown]
  - Atrial septal defect [Unknown]
  - Behaviour disorder [Not Recovered/Not Resolved]

NARRATIVE: CASE EVENT DATE: 20241010
